FAERS Safety Report 5494818-4 (Version None)
Quarter: 2007Q4

REPORT INFORMATION
  Report Type: 
  Country: None (occurrence: None)
  Receive Date: 20071015
  Receipt Date: 20060817
  Transmission Date: 20080405
  Serious: Yes (Other)
  Sender: FDA-Public Use
  Company Number: S06-USA-03272-01

PATIENT
  Sex: Male

DRUGS (2)
  1. LEXAPRO [Suspect]
  2. MULTIPLE MEDICATIONS (NOS) [Concomitant]

REACTIONS (1)
  - LIVER FUNCTION TEST ABNORMAL [None]
